FAERS Safety Report 10050801 (Version 1)
Quarter: 2014Q2

REPORT INFORMATION
  Report Type: Spontaneous
  Country: US (occurrence: US)
  Receive Date: 20140401
  Receipt Date: 20140401
  Transmission Date: 20141212
  Serious: No
  Sender: FDA-Public Use
  Company Number: US-ASTRAZENECA-2014SE00764

PATIENT
  Age: 65 Year
  Sex: Female
  Weight: 66.2 kg

DRUGS (9)
  1. NEXIUM [Suspect]
     Indication: GASTROOESOPHAGEAL REFLUX DISEASE
     Route: 048
  2. PRILOSEC [Suspect]
     Indication: GASTROOESOPHAGEAL REFLUX DISEASE
     Route: 048
  3. PRILOSEC [Suspect]
     Indication: GASTROOESOPHAGEAL REFLUX DISEASE
     Dosage: GENERIC, 40 MG DAILY, MYLAN PHARMACEUTICALS
     Route: 048
     Dates: start: 201312
  4. METHOTEXTRATE [Concomitant]
     Indication: PSORIASIS
     Dosage: 225MG
     Route: 048
     Dates: start: 1987
  5. METHOTEXTRATE [Concomitant]
     Indication: ARTHRITIS
     Dosage: 225MG
     Route: 048
     Dates: start: 1987
  6. ESTROGEN PATCH [Concomitant]
     Indication: HYSTERECTOMY
     Dosage: 0.75 BIWK
     Route: 048
     Dates: start: 1989
  7. COZAR [Concomitant]
     Indication: HYPERTENSION
     Route: 048
     Dates: start: 2006
  8. INSPIRA [Concomitant]
     Indication: HYPERTENSION
     Route: 048
  9. PREVACID [Concomitant]

REACTIONS (4)
  - Dysphagia [Not Recovered/Not Resolved]
  - Flatulence [Not Recovered/Not Resolved]
  - Eructation [Not Recovered/Not Resolved]
  - Intentional product misuse [Unknown]
